FAERS Safety Report 8318712 (Version 3)
Quarter: 2013Q3

REPORT INFORMATION
  Report Type: Spontaneous
  Country: US (occurrence: US)
  Receive Date: 20120103
  Receipt Date: 20130704
  Transmission Date: 20140515
  Serious: Yes (Life-Threatening, Congenital Anomaly, Other)
  Sender: FDA-Public Use
  Company Number: US-PFIZER INC-2011288527

PATIENT
  Sex: Male

DRUGS (13)
  1. ZOLOFT [Suspect]
     Dosage: UNK
     Route: 064
  2. PROMETRIUM [Concomitant]
     Dosage: 200 MG, 2X/DAY
     Route: 064
     Dates: start: 20101006
  3. CHERATUSSIN AC SYRUP [Concomitant]
     Dosage: 1 TO 2 TEASPOONFUL, EVERY SIX HOURS AS NEEDED
     Route: 064
     Dates: start: 20101118
  4. AZITHROMYCIN [Concomitant]
     Dosage: 500 MG, 1X/DAY (250MG TWO TABLETS AT ONCE)
     Route: 064
     Dates: start: 20101129, end: 20101129
  5. AZITHROMYCIN [Concomitant]
     Dosage: 250 MG, 1X/DAY
     Route: 064
     Dates: start: 20101130, end: 201012
  6. SERTRALINE [Concomitant]
     Dosage: 25 MG, 1X/DAY
     Route: 064
     Dates: start: 20110107
  7. ACETAMINOPHEN W/CODEINE [Concomitant]
     Dosage: 1 OR 2 TABLETS EVERY 4 TO 6 HOURS AS NEEDED
     Route: 064
     Dates: start: 20110107
  8. POTASSIUM CL ER [Concomitant]
     Dosage: 20 MEQ, 1X/DAY
     Route: 064
     Dates: start: 20110107, end: 201101
  9. HYDROXYZINE PAMOATE [Concomitant]
     Dosage: 25 MG, EVERY FOUR TO SIX HOURS AS NEEDED
     Route: 064
     Dates: start: 20110204
  10. ZOLPIDEM [Concomitant]
     Indication: INSOMNIA
     Dosage: 10 MG, 1X/DAY (EVERY NIGHT)
     Route: 064
     Dates: start: 20110214
  11. ONDANSETRON ODT [Concomitant]
     Dosage: 4 MG, EVERY SIX TO EIGHT HOURS AS NEEDED
     Route: 064
     Dates: start: 20110331
  12. HYDROCODONE/ ACETAMINOPHEN [Concomitant]
     Dosage: 5-500 UNKNOWN UNITS, EVERY 4 TO 6 HOURS AS NEEDED
     Route: 064
     Dates: start: 20110405
  13. AMOXICILLIN [Concomitant]
     Dosage: 875 MG, 2X/DAY
     Route: 064
     Dates: start: 20110512, end: 201105

REACTIONS (3)
  - Maternal exposure timing unspecified [Unknown]
  - Talipes [Unknown]
  - Congenital anomaly [Unknown]
